FAERS Safety Report 8314512-1 (Version None)
Quarter: 2012Q2

REPORT INFORMATION
  Report Type: 
  Country: None (occurrence: None)
  Receive Date: 20120426
  Receipt Date: 20120424
  Transmission Date: 20120825
  Serious: Yes (Hospitalization)
  Sender: FDA-Public Use
  Company Number: AT-ROCHE-1062810

PATIENT
  Age: 70 Year
  Sex: Male

DRUGS (1)
  1. CLONAZEPAM [Suspect]
     Indication: PRODUCT USED FOR UNKNOWN INDICATION
     Route: 048
     Dates: start: 20120112

REACTIONS (4)
  - SINUS BRADYCARDIA [None]
  - DIZZINESS [None]
  - INTENTIONAL OVERDOSE [None]
  - SOMNOLENCE [None]
